FAERS Safety Report 9486743 (Version 3)
Quarter: 2013Q4

REPORT INFORMATION
  Report Type: Spontaneous
  Country: US (occurrence: US)
  Receive Date: 20130829
  Receipt Date: 20131203
  Transmission Date: 20140711
  Serious: No
  Sender: FDA-Public Use
  Company Number: US-BRISTOL-MYERS SQUIBB COMPANY-19010594

PATIENT
  Sex: 0

DRUGS (1)
  1. KOMBOGLYZE [Suspect]

REACTIONS (2)
  - Palpitations [Unknown]
  - Chest pain [Unknown]
